FAERS Safety Report 5366584-4 (Version None)
Quarter: 2007Q2

REPORT INFORMATION
  Report Type: 
  Country: None (occurrence: None)
  Receive Date: 20070622
  Receipt Date: 20070609
  Transmission Date: 20071010
  Serious: Yes (Other)
  Sender: FDA-Public Use
  Company Number: US-PFIZER INC-2007037368

PATIENT
  Sex: Female
  Weight: 52.3 kg

DRUGS (8)
  1. VARENICLINE [Suspect]
     Indication: SMOKING CESSATION THERAPY
     Dates: start: 20070401, end: 20070401
  2. LAXATIVES [Concomitant]
  3. NITROGLYCERIN [Concomitant]
     Route: 060
  4. PERCOCET [Concomitant]
     Dosage: FREQ:1 TABLET EVERY 4-6 HOURS
     Route: 048
  5. PREVACID [Concomitant]
     Route: 048
  6. LEVOXYL [Concomitant]
     Route: 048
  7. TRAZODONE HCL [Concomitant]
     Route: 048
  8. ALPRAZOLAM [Concomitant]
     Route: 048

REACTIONS (11)
  - ADVERSE DRUG REACTION [None]
  - ANOREXIA [None]
  - CONSTIPATION [None]
  - DYSPHAGIA [None]
  - HAEMORRHOIDS [None]
  - OEDEMA MOUTH [None]
  - RETCHING [None]
  - SWELLING FACE [None]
  - VOMITING [None]
  - WEIGHT DECREASED [None]
  - WEIGHT INCREASED [None]
